FAERS Safety Report 25435933 (Version 1)
Quarter: 2025Q2

REPORT INFORMATION
  Report Type: Spontaneous
  Country: GB (occurrence: GB)
  Receive Date: 20250613
  Receipt Date: 20250613
  Transmission Date: 20250717
  Serious: Yes (Life-Threatening, Other)
  Sender: ELI LILLY AND COMPANY
  Company Number: GB-MHRA-WEBRADR-202506101316353060-GBRDZ

PATIENT
  Age: 63 Year
  Sex: Female
  Weight: 120 kg

DRUGS (1)
  1. MOUNJARO [Suspect]
     Active Substance: TIRZEPATIDE
     Indication: Weight control
     Route: 058
     Dates: start: 20250501, end: 20250610

REACTIONS (3)
  - Gastrointestinal haemorrhage [Unknown]
  - Anaemia [Unknown]
  - Abdominal pain upper [Unknown]

NARRATIVE: CASE EVENT DATE: 20250601
